FAERS Safety Report 20311444 (Version 1)
Quarter: 2022Q1

REPORT INFORMATION
  Report Type: Spontaneous
  Country: US (occurrence: US)
  Receive Date: 20220108
  Receipt Date: 20220108
  Transmission Date: 20220423
  Serious: Yes (Other)
  Sender: FDA-Public Use
  Company Number: US-Shilpa Medicare Limited-SML-US-2021-01596

PATIENT
  Age: 63 Year
  Sex: Female

DRUGS (9)
  1. ZOLEDRONIC ACID [Suspect]
     Active Substance: ZOLEDRONIC ACID
     Indication: Bone disorder
  2. PALBOCICLIB [Suspect]
     Active Substance: PALBOCICLIB
     Indication: Invasive lobular breast carcinoma
     Dates: start: 201905
  3. PALBOCICLIB [Suspect]
     Active Substance: PALBOCICLIB
     Dates: start: 201907
  4. PALBOCICLIB [Suspect]
     Active Substance: PALBOCICLIB
     Dates: start: 202004, end: 202008
  5. LETROZOLE [Suspect]
     Active Substance: LETROZOLE
     Indication: Invasive lobular breast carcinoma
     Dates: start: 202004, end: 202008
  6. FULVESTRANT [Suspect]
     Active Substance: FULVESTRANT
     Indication: Invasive lobular breast carcinoma
     Dates: start: 202004, end: 202008
  7. EVEROLIMUS [Suspect]
     Active Substance: EVEROLIMUS
     Indication: Invasive lobular breast carcinoma
     Dates: start: 20200828
  8. EVEROLIMUS [Suspect]
     Active Substance: EVEROLIMUS
  9. EXEMESTANE [Suspect]
     Active Substance: EXEMESTANE
     Indication: Invasive lobular breast carcinoma
     Dates: start: 20200828

REACTIONS (5)
  - Leukopenia [Recovering/Resolving]
  - Disease progression [Recovered/Resolved]
  - Rash erythematous [Not Recovered/Not Resolved]
  - Neutropenia [Recovering/Resolving]
  - Gene mutation [Recovering/Resolving]

NARRATIVE: CASE EVENT DATE: 20200201
